FAERS Safety Report 4315873-0 (Version None)
Quarter: 2004Q1

REPORT INFORMATION
  Report Type: 
  Country: None (occurrence: None)
  Receive Date: 20040303
  Receipt Date: 20030221
  Transmission Date: 20041129
  Serious: Yes (Other)
  Sender: FDA-Public Use
  Company Number: 200313384BWH

PATIENT
  Age: 83 Year
  Sex: Male

DRUGS (1)
  1. APROTININ [Suspect]
     Indication: CORONARY ARTERY SURGERY
     Dosage: INTRAVENOUS
     Route: 042

REACTIONS (1)
  - BLOOD PRESSURE SYSTOLIC DECREASED [None]
